FAERS Safety Report 5029848-X (Version None)
Quarter: 2006Q2

REPORT INFORMATION
  Report Type: 
  Country: None (occurrence: None)
  Receive Date: 20060620
  Receipt Date: 20060607
  Transmission Date: 20061013
  Serious: Yes (Hospitalization)
  Sender: FDA-Public Use
  Company Number: HQWYE032408JUN06

PATIENT
  Sex: Male

DRUGS (3)
  1. ENBREL [Suspect]
     Indication: RHEUMATOID ARTHRITIS
     Route: 058
     Dates: start: 20060210, end: 20060501
  2. SULFASALAZINE [Concomitant]
     Route: 048
  3. BUCILLAMINE [Concomitant]
     Route: 048

REACTIONS (3)
  - CHOLANGITIS SUPPURATIVE [None]
  - RENAL FAILURE ACUTE [None]
  - SEPSIS [None]
